FAERS Safety Report 7241350-3 (Version None)
Quarter: 2011Q1

REPORT INFORMATION
  Report Type: 
  Country: None (occurrence: None)
  Receive Date: 20110124
  Receipt Date: 20110117
  Transmission Date: 20110831
  Serious: Yes (Other)
  Sender: FDA-Public Use
  Company Number: US-SANOFI-AVENTIS-2011SA003575

PATIENT
  Age: 85 Year
  Sex: Male

DRUGS (2)
  1. OPTICLICK [Suspect]
     Indication: DIABETES MELLITUS
     Dates: start: 20010101
  2. LANTUS [Suspect]
     Indication: TYPE 1 DIABETES MELLITUS
     Dosage: DOSE:10 UNIT(S)
     Route: 058
     Dates: start: 20010101

REACTIONS (2)
  - ASTHENIA [None]
  - DEMENTIA [None]
